FAERS Safety Report 7151998-2 (Version None)
Quarter: 2010Q4

REPORT INFORMATION
  Report Type: 
  Country: None (occurrence: None)
  Receive Date: 20101211
  Receipt Date: 20101208
  Transmission Date: 20110411
  Serious: Yes (Death, Other)
  Sender: FDA-Public Use
  Company Number: AU-PFIZER INC-2010168478

PATIENT
  Age: 86 Year
  Sex: Female

DRUGS (7)
  1. LIPITOR [Suspect]
     Dosage: 80 MG, UNK
  2. LIPITOR [Suspect]
     Dosage: 40 MG, UNK
  3. PRAVACHOL [Suspect]
     Dosage: UNK
  4. MIRTAZAPINE [Concomitant]
     Indication: DEPRESSION
     Dosage: 30 MG, 1X/DAY
  5. LEVOTHYROXINE SODIUM [Concomitant]
     Dosage: 50 UG, UNK
  6. LASIX [Concomitant]
     Dosage: 40 MG, UNK
  7. BICOR [Concomitant]
     Dosage: 10 MG, UNK

REACTIONS (3)
  - ANGER [None]
  - DEATH [None]
  - IRRITABILITY [None]
